FAERS Safety Report 6933141-5 (Version None)
Quarter: 2010Q3

REPORT INFORMATION
  Report Type: 
  Country: None (occurrence: None)
  Receive Date: 20100820
  Receipt Date: 20100817
  Transmission Date: 20110219
  Serious: Yes (Other)
  Sender: FDA-Public Use
  Company Number: US-ASTRAZENECA-2007UW18814

PATIENT
  Age: 587 Month
  Sex: Female
  Weight: 97.1 kg

DRUGS (8)
  1. SEROQUEL [Suspect]
     Indication: BIPOLAR DISORDER
     Route: 048
     Dates: start: 20050101, end: 20060101
  2. SEROQUEL [Suspect]
     Route: 048
     Dates: start: 20051116
  3. EFFEXOR [Concomitant]
     Dosage: 150 - 300 MG DAILY
     Dates: start: 20030809
  4. ENTEX PSE [Concomitant]
     Dosage: 1 TAB BID FOR 10 DAYS
     Dates: start: 20050115
  5. XANAX [Concomitant]
     Dates: start: 20050115
  6. LORTAB [Concomitant]
     Indication: PAIN IN JAW
     Dosage: 5 FOR 5 DAYS, 10 1 - TAB Q6, 7.5 1 -TAB BID
     Dates: start: 20030809
  7. LORTAB [Concomitant]
     Indication: TOOTHACHE
     Dosage: 5 FOR 5 DAYS, 10 1 - TAB Q6, 7.5 1 -TAB BID
     Dates: start: 20030809
  8. KLONOPIN [Concomitant]
     Dosage: 0.5 - 1.5 MG DAILY
     Dates: start: 20050225

REACTIONS (6)
  - DIABETES MELLITUS [None]
  - DIABETES MELLITUS INADEQUATE CONTROL [None]
  - DIABETIC NEUROPATHY [None]
  - NEUROPATHY PERIPHERAL [None]
  - TYPE 2 DIABETES MELLITUS [None]
  - WEIGHT INCREASED [None]
